FAERS Safety Report 17223990 (Version 1)
Quarter: 2020Q1

REPORT INFORMATION
  Report Type: Spontaneous
  Country: US (occurrence: US)
  Receive Date: 20200102
  Receipt Date: 20200102
  Transmission Date: 20200409
  Serious: Yes (Other)
  Sender: FDA-Public Use
  Company Number: US-MYLANLABS-2019M1123287

PATIENT
  Sex: Male
  Weight: 95 kg

DRUGS (6)
  1. PROPOFOL. [Concomitant]
     Active Substance: PROPOFOL
     Dosage: UNK
  2. FENTANYL. [Concomitant]
     Active Substance: FENTANYL
  3. DEXAMETHASONE SODIUM PHOSPHATE INJECTION USP 4 MG/ML [Suspect]
     Active Substance: DEXAMETHASONE
     Indication: ANAESTHESIA
     Dosage: 3 UNK
     Route: 042
     Dates: start: 20191206
  4. MIDAZOLAM                          /00634102/ [Concomitant]
     Active Substance: MIDAZOLAM HYDROCHLORIDE
     Indication: ANAESTHESIA
     Route: 042
     Dates: start: 20191206, end: 20191206
  5. CEFAZOLIN [Concomitant]
     Active Substance: CEFAZOLIN
  6. KETAMINE HCL [Suspect]
     Active Substance: KETAMINE HYDROCHLORIDE
     Indication: ANAESTHESIA
     Dosage: ONCE
     Route: 041
     Dates: start: 20191206, end: 20191206

REACTIONS (1)
  - Pharyngeal swelling [Recovered/Resolved]

NARRATIVE: CASE EVENT DATE: 20191206
